FAERS Safety Report 11725093 (Version 1)
Quarter: 2015Q4

REPORT INFORMATION
  Report Type: Spontaneous
  Country: US (occurrence: US)
  Receive Date: 20151111
  Receipt Date: 20151111
  Transmission Date: 20160304
  Serious: No
  Sender: FDA-Public Use
  Company Number: US-UCBSA-2015002430

PATIENT
  Age: 51 Year
  Sex: Male
  Weight: 89.81 kg

DRUGS (4)
  1. VIMPAT [Suspect]
     Active Substance: LACOSAMIDE
     Dosage: UNK, OVERDOSE (TOOK SECOND DOSE IN ERROR)
     Dates: start: 201410
  2. VIMPAT [Suspect]
     Active Substance: LACOSAMIDE
     Indication: GENERALISED TONIC-CLONIC SEIZURE
     Dosage: 200 MG, 2X/DAY (BID)
     Dates: start: 201403, end: 2014
  3. LAMICTAL [Concomitant]
     Active Substance: LAMOTRIGINE
     Indication: GENERALISED TONIC-CLONIC SEIZURE
     Dosage: 200 MG, 2X/DAY (BID)
     Dates: start: 2010
  4. LISINOPRIL. [Concomitant]
     Active Substance: LISINOPRIL
     Indication: HYPERTENSION
     Dosage: 200 MG

REACTIONS (5)
  - Limb discomfort [Recovered/Resolved]
  - Fatigue [Not Recovered/Not Resolved]
  - Swollen tongue [Recovered/Resolved]
  - Overdose [Unknown]
  - Strabismus [Not Recovered/Not Resolved]

NARRATIVE: CASE EVENT DATE: 201403
